FAERS Safety Report 4966171-3 (Version None)
Quarter: 2006Q1

REPORT INFORMATION
  Report Type: 
  Country: None (occurrence: None)
  Receive Date: 20060201
  Receipt Date: 20051127
  Transmission Date: 20060701
  Serious: No
  Sender: FDA-Public Use
  Company Number: 2005PV004947

PATIENT
  Age: 78 Year
  Sex: Female
  Weight: 92.5338 kg

DRUGS (11)
  1. BYETTA [Suspect]
     Indication: DIABETES MELLITUS NON-INSULIN-DEPENDENT
     Dosage: 5 MCG;BID;SC
     Route: 058
     Dates: start: 20051103
  2. METFORMIN [Concomitant]
  3. AMARYL [Concomitant]
  4. COZAAR [Concomitant]
  5. TOPROL-XL [Concomitant]
  6. CELEBREX [Concomitant]
  7. FOLIC ACID [Concomitant]
  8. FOSAMAX [Concomitant]
  9. FUROSEMIDE [Concomitant]
  10. CALCIUM GLUCONATE [Concomitant]
  11. PROTONIX [Concomitant]

REACTIONS (2)
  - DYSGEUSIA [None]
  - WEIGHT DECREASED [None]
